FAERS Safety Report 6706663-X (Version None)
Quarter: 2010Q2

REPORT INFORMATION
  Report Type: 
  Country: None (occurrence: None)
  Receive Date: 20100423
  Receipt Date: 20091210
  Transmission Date: 20101027
  Serious: No
  Sender: FDA-Public Use
  Company Number: ALL1-2009-03986

PATIENT
  Age: 49 Year
  Sex: Female
  Weight: 50.8 kg

DRUGS (3)
  1. VYVANSE [Suspect]
     Indication: DEPRESSION
     Dosage: 50 MG, 1X/DAY:QD, ORAL; 70 MG, 1X/DAY:QD, ORAL
     Route: 048
     Dates: start: 20090101, end: 20091101
  2. VYVANSE [Suspect]
     Indication: DEPRESSION
     Dosage: 50 MG, 1X/DAY:QD, ORAL; 70 MG, 1X/DAY:QD, ORAL
     Route: 048
     Dates: start: 20091101
  3. CELEXA [Concomitant]

REACTIONS (2)
  - EYE PAIN [None]
  - OFF LABEL USE [None]
